FAERS Safety Report 9751935 (Version 2)
Quarter: 2013Q4

REPORT INFORMATION
  Report Type: Report from Study
  Country: DE (occurrence: DE)
  Receive Date: 20131213
  Receipt Date: 20131213
  Transmission Date: 20140711
  Serious: Yes (Hospitalization, Other)
  Sender: FDA-Public Use
  Company Number: DE-ROCHE-1301496

PATIENT
  Age: 13 Year
  Sex: Female
  Weight: 36.2 kg

DRUGS (16)
  1. VALGANCICLOVIR [Suspect]
     Indication: CYTOMEGALOVIRUS INFECTION
     Route: 065
  2. MIRCERA [Suspect]
     Indication: PRODUCT USED FOR UNKNOWN INDICATION
     Dosage: LAST DOSE PRIOR TO SAE: 05/OCT/2008.
     Route: 058
     Dates: start: 20080412
  3. DIPIDOLOR [Concomitant]
     Indication: PAIN
     Route: 042
     Dates: start: 20070808
  4. MAGNESIUM VERLA TABLETS (GERMANY) [Concomitant]
     Route: 048
     Dates: end: 20070813
  5. DELIX (GERMANY) [Concomitant]
     Route: 048
     Dates: start: 20070818
  6. BELOC-ZOK [Concomitant]
     Route: 048
     Dates: start: 20070819
  7. KAMISTAD GEL [Concomitant]
     Route: 065
     Dates: start: 20071019
  8. CERTICAN [Concomitant]
     Route: 048
     Dates: start: 20080502
  9. DECORTIN H [Concomitant]
     Indication: PROPHYLAXIS AGAINST TRANSPLANT REJECTION
     Route: 048
     Dates: start: 20080916
  10. DUROGESIC [Concomitant]
     Indication: PAIN
     Route: 065
     Dates: start: 20080919
  11. PERENTEROL FORTE [Concomitant]
     Indication: DIARRHOEA
     Route: 048
     Dates: start: 20080919
  12. PROGRAF [Concomitant]
     Indication: PROPHYLAXIS AGAINST TRANSPLANT REJECTION
     Route: 048
     Dates: start: 20080919
  13. LORZAAR [Concomitant]
     Indication: HYPERTENSION
     Route: 048
     Dates: start: 20081005
  14. AMITRIPTYLINE [Concomitant]
     Indication: POLYNEUROPATHY
     Route: 048
     Dates: start: 20081005
  15. ANTRA MUPS [Concomitant]
     Indication: PROPHYLAXIS
     Route: 048
     Dates: start: 20081005
  16. TRIMETHOPRIM [Concomitant]
     Route: 048
     Dates: start: 20081006

REACTIONS (2)
  - Pancytopenia [Unknown]
  - Thrombosis [Unknown]
